FAERS Safety Report 9806926 (Version 2)
Quarter: 2014Q1

REPORT INFORMATION
  Report Type: Spontaneous
  Country: JP (occurrence: JP)
  Receive Date: 20140109
  Receipt Date: 20140109
  Transmission Date: 20141002
  Serious: Yes (Life-Threatening, Hospitalization, Disabling, Other)
  Sender: FDA-Public Use
  Company Number: JP-TAKEDA-2013TEU002246

PATIENT
  Age: 43 Year
  Sex: Female

DRUGS (8)
  1. TACHOSIL [Suspect]
     Indication: PROPHYLAXIS
     Dosage: 1SHEET /1DAY
     Dates: start: 20130716, end: 20130716
  2. PREDNISOLONE [Concomitant]
     Indication: SYSTEMIC LUPUS ERYTHEMATOSUS
     Dosage: 3 MG, QD
  3. PROGRAF XL [Concomitant]
     Indication: SYSTEMIC LUPUS ERYTHEMATOSUS
     Dosage: 2 MG, QD
     Route: 048
  4. AMLODIPINE [Concomitant]
     Indication: HYPERTENSION
     Dosage: 5 MG, QD
  5. OLMETEC [Concomitant]
     Indication: HYPERTENSION
     Dosage: 20 MG, QD
  6. DORNER [Concomitant]
     Indication: PULMONARY HYPERTENSION
     Dosage: 20 ?G, TID
  7. FLUITRAN [Concomitant]
     Indication: HYPERTENSION
     Dosage: 0.5 MG, QD
  8. RED BLOOD CELLS, CONCENTRATED [Concomitant]
     Dosage: 4 IU, UNK

REACTIONS (3)
  - Sepsis [Recovered/Resolved]
  - Platelet count decreased [Recovered/Resolved]
  - Pyrexia [Recovered/Resolved]
